FAERS Safety Report 24671755 (Version 1)
Quarter: 2024Q4

REPORT INFORMATION
  Report Type: Spontaneous
  Country: JP (occurrence: JP)
  Receive Date: 20241127
  Receipt Date: 20241127
  Transmission Date: 20250115
  Serious: Yes (Other)
  Sender: BOEHRINGER INGELHEIM
  Company Number: JP-NBI-2024-BI-064962

PATIENT
  Age: 80 Year
  Sex: Male

DRUGS (6)
  1. DABIGATRAN ETEXILATE MESYLATE [Suspect]
     Active Substance: DABIGATRAN ETEXILATE MESYLATE
     Indication: Atrial fibrillation
     Dosage: DAILY DOSE: 220 MILLIGRAM(S)
  2. ASPIRIN [Concomitant]
     Active Substance: ASPIRIN
     Indication: Product used for unknown indication
  3. APIXABAN [Concomitant]
     Active Substance: APIXABAN
     Indication: Product used for unknown indication
  4. APIXABAN [Concomitant]
     Active Substance: APIXABAN
  5. APIXABAN [Concomitant]
     Active Substance: APIXABAN
     Dosage: GRADUALLY DECREASED
  6. EDOXABAN TOSYLATE [Concomitant]
     Active Substance: EDOXABAN TOSYLATE
     Indication: Product used for unknown indication

REACTIONS (5)
  - Cerebral infarction [Unknown]
  - Gastrointestinal haemorrhage [Unknown]
  - Device related thrombosis [Recovered/Resolved]
  - Device related thrombosis [Recovered/Resolved]
  - Device related thrombosis [Recovered/Resolved]
